FAERS Safety Report 22645428 (Version 1)
Quarter: 2023Q2

REPORT INFORMATION
  Report Type: Spontaneous
  Country: US (occurrence: None)
  Receive Date: 20230626
  Receipt Date: 20230626
  Transmission Date: 20230721
  Serious: Yes (Other)
  Sender: FDA-Public Use
  Company Number: None

PATIENT
  Age: 56 Year
  Sex: Male
  Weight: 83.07 kg

DRUGS (14)
  1. REVLIMID [Suspect]
     Active Substance: LENALIDOMIDE
     Indication: Plasma cell myeloma
     Dosage: OTHER FREQUENCY : 21 ON/7 OFF;?
     Route: 048
     Dates: start: 20180331
  2. ACYCLOVIR [Concomitant]
     Active Substance: ACYCLOVIR
  3. ANORO ELLIPTA [Concomitant]
     Active Substance: UMECLIDINIUM BROMIDE\VILANTEROL TRIFENATATE
  4. ASPIRIN [Concomitant]
     Active Substance: ASPIRIN
  5. BACTRIM [Concomitant]
     Active Substance: SULFAMETHOXAZOLE\TRIMETHOPRIM
  6. DEXAMETHASONE [Concomitant]
     Active Substance: DEXAMETHASONE
  7. GABAPENTIN [Concomitant]
     Active Substance: GABAPENTIN
  8. COENZYME Q10 [Concomitant]
     Active Substance: DIETARY SUPPLEMENT\UBIDECARENONE
  9. LOSARTAN [Concomitant]
     Active Substance: LOSARTAN
  10. MUPIROCIN [Concomitant]
     Active Substance: MUPIROCIN
  11. NICOTINE [Concomitant]
     Active Substance: NICOTINE
  12. OXYCODONE [Concomitant]
     Active Substance: OXYCODONE
  13. ROSUVASTATIN [Concomitant]
     Active Substance: ROSUVASTATIN
  14. SODIUM BICARBONATE [Concomitant]
     Active Substance: SODIUM BICARBONATE

REACTIONS (1)
  - Neutropenia [None]

NARRATIVE: CASE EVENT DATE: 20230620
